FAERS Safety Report 22599438 (Version 1)
Quarter: 2023Q2

REPORT INFORMATION
  Report Type: Spontaneous
  Country: US (occurrence: US)
  Receive Date: 20230614
  Receipt Date: 20230614
  Transmission Date: 20230722
  Serious: No
  Sender: FDA-Public Use
  Company Number: US-TEVA-2023-US-2892412

PATIENT
  Age: 77 Year
  Sex: Male

DRUGS (1)
  1. TESTOSTERONE [Suspect]
     Active Substance: TESTOSTERONE
     Indication: Product used for unknown indication
     Dosage: 1 PERCENT
     Route: 065
     Dates: start: 2008

REACTIONS (3)
  - Expired product administered [Unknown]
  - Inability to afford medication [Unknown]
  - Product label issue [Unknown]
